FAERS Safety Report 23954118 (Version 2)
Quarter: 2024Q2

REPORT INFORMATION
  Report Type: Spontaneous
  Country: US (occurrence: US)
  Receive Date: 20240609
  Receipt Date: 20240617
  Transmission Date: 20240717
  Serious: No
  Sender: FDA-Public Use
  Company Number: US-ABBVIE-5790770

PATIENT
  Age: 100 Year
  Sex: Female
  Weight: 50 kg

DRUGS (4)
  1. NAMZARIC [Suspect]
     Active Substance: DONEPEZIL HYDROCHLORIDE\MEMANTINE HYDROCHLORIDE
     Indication: Dementia Alzheimer^s type
     Dosage: FORM STRENGTH: 28 MILLIGRAM
     Route: 048
     Dates: start: 20240603
  2. NAMZARIC [Suspect]
     Active Substance: DONEPEZIL HYDROCHLORIDE\MEMANTINE HYDROCHLORIDE
     Indication: Dementia Alzheimer^s type
     Dosage: FORM STRENGTH: 28 MILLIGRAM
     Route: 048
     Dates: start: 2014, end: 202405
  3. VALSARTAN [Concomitant]
     Active Substance: VALSARTAN
     Indication: Blood pressure measurement
  4. IMODIUM [Concomitant]
     Active Substance: LOPERAMIDE HYDROCHLORIDE
     Indication: Diarrhoea

REACTIONS (2)
  - Diarrhoea [Recovered/Resolved]
  - Confusional state [Recovered/Resolved]

NARRATIVE: CASE EVENT DATE: 20240501
